FAERS Safety Report 17277327 (Version 1)
Quarter: 2020Q1

REPORT INFORMATION
  Report Type: Spontaneous
  Country: MY (occurrence: MY)
  Receive Date: 20200116
  Receipt Date: 20200116
  Transmission Date: 20200409
  Serious: Yes (Life-Threatening, Hospitalization)
  Sender: FDA-Public Use
  Company Number: MY-MYLANLABS-2020M1005133

PATIENT
  Age: 46 Year
  Sex: Female

DRUGS (12)
  1. HYDROCORTISONE. [Suspect]
     Active Substance: HYDROCORTISONE
     Dosage: 200 MILLIGRAM
     Route: 042
  2. PROPRANOLOL [Concomitant]
     Active Substance: PROPRANOLOL HYDROCHLORIDE
     Indication: ATRIAL FIBRILLATION
     Dosage: 40 MILLIGRAM
     Route: 048
  3. AMIODARONE [Suspect]
     Active Substance: AMIODARONE
     Indication: CIRCULATORY COLLAPSE
     Route: 065
  4. EPINEPHRINE. [Suspect]
     Active Substance: EPINEPHRINE
     Indication: CIRCULATORY COLLAPSE
     Route: 042
  5. ESMOLOL [Concomitant]
     Active Substance: ESMOLOL HYDROCHLORIDE
     Indication: CIRCULATORY COLLAPSE
     Route: 042
  6. NORADRENALINE                      /00127501/ [Suspect]
     Active Substance: NOREPINEPHRINE
     Indication: CIRCULATORY COLLAPSE
     Dosage: UNK
     Route: 042
  7. DIGOXIN. [Suspect]
     Active Substance: DIGOXIN
     Indication: CIRCULATORY COLLAPSE
     Dosage: UNK
     Route: 065
  8. LUGOLS IODINE [Suspect]
     Active Substance: IODINE\POTASSIUM IODIDE
     Indication: THYROTOXIC CRISIS
     Dosage: 10 DROPS
     Route: 065
  9. CARBIMAZOLE [Suspect]
     Active Substance: CARBIMAZOLE
     Indication: THYROTOXIC CRISIS
     Dosage: 30 MILLIGRAM, Q6H
     Route: 048
  10. PROPYLTHIOURACIL. [Concomitant]
     Active Substance: PROPYLTHIOURACIL
     Indication: THYROTOXIC CRISIS
     Dosage: 600 MILLIGRAM
     Route: 048
  11. HYDROCORTISONE. [Suspect]
     Active Substance: HYDROCORTISONE
     Indication: THYROTOXIC CRISIS
     Dosage: 100 MILLIGRAM, Q8H
     Route: 042
  12. DOPAMINE [Suspect]
     Active Substance: DOPAMINE HYDROCHLORIDE
     Indication: CIRCULATORY COLLAPSE
     Route: 042

REACTIONS (1)
  - Drug ineffective [Unknown]
